FAERS Safety Report 9437293 (Version 1)
Quarter: 2013Q3

REPORT INFORMATION
  Report Type: Spontaneous
  Country: US (occurrence: US)
  Receive Date: 20130802
  Receipt Date: 20130802
  Transmission Date: 20140515
  Serious: No
  Sender: FDA-Public Use
  Company Number: US-009507513-1308USA000638

PATIENT
  Age: 28 Year
  Sex: Male

DRUGS (3)
  1. SAPHRIS [Suspect]
     Indication: SCHIZOPHRENIA
     Dosage: 5 MG, QD
     Route: 060
     Dates: start: 20130731
  2. CLOZAPINE [Concomitant]
  3. PERPHENAZINE [Concomitant]

REACTIONS (4)
  - Pharyngeal hypoaesthesia [Unknown]
  - Oral discomfort [Unknown]
  - Underdose [Unknown]
  - Drug prescribing error [Unknown]
